FAERS Safety Report 15283633 (Version 1)
Quarter: 2018Q3

REPORT INFORMATION
  Report Type: Spontaneous
  Country: US (occurrence: US)
  Receive Date: 20180731
  Receipt Date: 20180731
  Transmission Date: 20181010
  Serious: Yes (Hospitalization)
  Sender: FDA-Public Use
  Company Number: None

PATIENT
  Age: 58 Year
  Sex: Male
  Weight: 124 kg

DRUGS (3)
  1. DULOXETINE. [Suspect]
     Active Substance: DULOXETINE
     Indication: NEUROPATHY PERIPHERAL
     Route: 048
     Dates: start: 20180704, end: 20180706
  2. CYCLOBENZAPRINE 10 MG [Concomitant]
     Active Substance: CYCLOBENZAPRINE
     Dates: start: 20180704, end: 20180704
  3. MEXILETINE 200 MG TID [Concomitant]

REACTIONS (12)
  - Muscle twitching [None]
  - Insomnia [None]
  - Palpitations [None]
  - Condition aggravated [None]
  - Tremor [None]
  - Vision blurred [None]
  - Restlessness [None]
  - Photophobia [None]
  - Hyperhidrosis [None]
  - Polyuria [None]
  - Confusional state [None]
  - Serotonin syndrome [None]

NARRATIVE: CASE EVENT DATE: 20180706
